FAERS Safety Report 4957017-8 (Version None)
Quarter: 2006Q1

REPORT INFORMATION
  Report Type: 
  Country: None (occurrence: None)
  Receive Date: 20060329
  Receipt Date: 20060317
  Transmission Date: 20060701
  Serious: Yes (Hospitalization)
  Sender: FDA-Public Use
  Company Number: JP-JNJFOC-20051003093

PATIENT
  Sex: Male
  Weight: 87 kg

DRUGS (7)
  1. RISPERDAL CONSTA [Suspect]
     Route: 030
  2. RISPERDAL CONSTA [Suspect]
     Indication: SCHIZOPHRENIA
     Route: 030
  3. NIFEDIPINE [Concomitant]
     Indication: HYPERTENSION
     Route: 048
  4. FLUNITRAZEPAM [Concomitant]
     Indication: INSOMNIA
  5. SENNOSIDE [Concomitant]
     Indication: CONSTIPATION
  6. PARKINES [Concomitant]
  7. OFLOXACIN [Concomitant]
     Indication: CONJUNCTIVITIS

REACTIONS (3)
  - MENTAL STATUS CHANGES [None]
  - OEDEMA [None]
  - POLYDIPSIA [None]
